FAERS Safety Report 25267773 (Version 3)
Quarter: 2025Q3

REPORT INFORMATION
  Report Type: Report from Study
  Country: US (occurrence: US)
  Receive Date: 20250505
  Receipt Date: 20250806
  Transmission Date: 20251020
  Serious: No
  Sender: UCB
  Company Number: US-UCBSA-2025025830

PATIENT
  Age: 17 Year
  Sex: Female
  Weight: 52 kg

DRUGS (1)
  1. FINTEPLA [Suspect]
     Active Substance: FENFLURAMINE
     Indication: Lennox-Gastaut syndrome
     Dosage: 6 MILLILITER, 2X/DAY (BID)
     Route: 048

REACTIONS (2)
  - Mitral valve prolapse [Unknown]
  - Somnolence [Recovered/Resolved]

NARRATIVE: CASE EVENT DATE: 20250423
